FAERS Safety Report 17716716 (Version 2)
Quarter: 2020Q2

REPORT INFORMATION
  Report Type: Spontaneous
  Country: UA (occurrence: UA)
  Receive Date: 20200428
  Receipt Date: 20200519
  Transmission Date: 20200714
  Serious: Yes (Death, Life-Threatening)
  Sender: FDA-Public Use
  Company Number: UA-ASTRAZENECA-2020SE55475

PATIENT
  Age: 70 Year
  Sex: Male
  Weight: 70 kg

DRUGS (6)
  1. NOLPAZA [Concomitant]
     Active Substance: PANTOPRAZOLE SODIUM
     Dates: start: 20200416
  2. INTEGRILIN [Concomitant]
     Active Substance: EPTIFIBATIDE
     Dates: start: 20200416
  3. ASA [Concomitant]
     Active Substance: ASPIRIN
     Dates: start: 20200416
  4. PREDUCTAL [Concomitant]
     Active Substance: TRIMETAZIDINE DIHYDROCHLORIDE
     Dates: start: 20200416
  5. BRILINTA [Suspect]
     Active Substance: TICAGRELOR
     Indication: ACUTE MYOCARDIAL INFARCTION
     Dosage: 90.0MG UNKNOWN
     Route: 048
     Dates: start: 20200416, end: 20200417
  6. DOPAMINE [Concomitant]
     Active Substance: DOPAMINE HYDROCHLORIDE
     Dates: start: 20200417

REACTIONS (3)
  - Cardiogenic shock [Fatal]
  - Gastrointestinal haemorrhage [Fatal]
  - COVID-19 [Fatal]

NARRATIVE: CASE EVENT DATE: 20200417
